FAERS Safety Report 22659394 (Version 1)
Quarter: 2023Q2

REPORT INFORMATION
  Report Type: Spontaneous
  Country: US (occurrence: US)
  Receive Date: 20230630
  Receipt Date: 20230630
  Transmission Date: 20230722
  Serious: No
  Sender: FDA-Public Use
  Company Number: US-BAYER-2023A077664

PATIENT
  Age: 74 Year
  Sex: Male

DRUGS (2)
  1. MIRALAX [Suspect]
     Active Substance: POLYETHYLENE GLYCOL 3350
     Indication: Gastrointestinal disorder
     Dosage: 1 CAPFUL EVERYDAY
     Route: 048
     Dates: end: 20230531
  2. MIRALAX [Suspect]
     Active Substance: POLYETHYLENE GLYCOL 3350
     Indication: Faeces hard

REACTIONS (5)
  - Drug ineffective for unapproved indication [Unknown]
  - Rebound effect [Unknown]
  - Faeces hard [Unknown]
  - Product physical issue [Unknown]
  - Counterfeit product administered [Unknown]
